FAERS Safety Report 11544453 (Version 4)
Quarter: 2015Q4

REPORT INFORMATION
  Report Type: Spontaneous
  Country: US (occurrence: US)
  Receive Date: 20150924
  Receipt Date: 20151105
  Transmission Date: 20160304
  Serious: Yes (Other)
  Sender: FDA-Public Use
  Company Number: US-PFIZER INC-2015292094

PATIENT
  Age: 65 Year
  Sex: Female
  Weight: 72 kg

DRUGS (4)
  1. CLARINEX [Concomitant]
     Active Substance: DESLORATADINE
     Dosage: UNK
  2. BABY ASPIRIN [Concomitant]
     Active Substance: ASPIRIN
     Dosage: UNK
     Dates: end: 20150930
  3. SUTENT [Suspect]
     Active Substance: SUNITINIB MALATE
     Indication: METASTATIC RENAL CELL CARCINOMA
     Dosage: 50 MG, CYCLIC (DAILY 2 WEEKS ON/1 WEEK OFF)
     Dates: start: 20150830, end: 20151023
  4. CADUET [Concomitant]
     Active Substance: AMLODIPINE BESYLATE\ATORVASTATIN CALCIUM
     Dosage: 5/10

REACTIONS (8)
  - Blood thyroid stimulating hormone increased [Unknown]
  - Dry mouth [Unknown]
  - Rectal haemorrhage [Not Recovered/Not Resolved]
  - Haemorrhoidal haemorrhage [Unknown]
  - Vaginal haemorrhage [Unknown]
  - Dysgeusia [Unknown]
  - Abdominal pain upper [Not Recovered/Not Resolved]
  - Diarrhoea [Not Recovered/Not Resolved]
